FAERS Safety Report 14344253 (Version 1)
Quarter: 2018Q1

REPORT INFORMATION
  Report Type: Spontaneous
  Country: US (occurrence: US)
  Receive Date: 20180102
  Receipt Date: 20180102
  Transmission Date: 20180509
  Serious: Yes (Death, Other)
  Sender: FDA-Public Use
  Company Number: US-009507513-1712USA014629

PATIENT
  Age: 49 Year
  Sex: Male

DRUGS (5)
  1. FUROSEMIDE. [Suspect]
     Active Substance: FUROSEMIDE
  2. METOPROLOL. [Suspect]
     Active Substance: METOPROLOL
  3. PRINIVIL [Suspect]
     Active Substance: LISINOPRIL
     Route: 048
  4. ETHYL SALICYLATE. [Suspect]
     Active Substance: ETHYL SALICYLATE
  5. RIVAROXABAN [Suspect]
     Active Substance: RIVAROXABAN

REACTIONS (1)
  - Death [Fatal]
